FAERS Safety Report 17061920 (Version 6)
Quarter: 2020Q3

REPORT INFORMATION
  Report Type: Report from Study
  Country: None (occurrence: NL)
  Receive Date: 20191121
  Receipt Date: 20200921
  Transmission Date: 20201102
  Serious: Yes (Hospitalization, Other)
  Sender: FDA-Public Use
  Company Number: NL-ABBVIE-19K-114-3008949-00

PATIENT
  Age: 78 Year
  Sex: Male

DRUGS (4)
  1. DUODOPA [Suspect]
     Active Substance: CARBIDOPA\LEVODOPA
     Dosage: CD 4.9, ED 3.0 REMAINS AT 24
     Route: 050
  2. CLOZAPINE. [Concomitant]
     Active Substance: CLOZAPINE
     Indication: PRODUCT USED FOR UNKNOWN INDICATION
  3. DUODOPA [Suspect]
     Active Substance: CARBIDOPA\LEVODOPA
     Indication: PARKINSON^S DISEASE
     Dosage: MD 6.5, CD 4.7, ED 2.0, CDN 4.0, EDN 2.0
     Route: 050
     Dates: start: 20180515
  4. DUODOPA [Suspect]
     Active Substance: CARBIDOPA\LEVODOPA
     Dosage: MD 6.5, CD 4.1, ED 2.0 REMAINS AT 24
     Route: 050

REACTIONS (9)
  - Cognitive disorder [Unknown]
  - Hospitalisation [Recovered/Resolved]
  - Disturbance in attention [Unknown]
  - Muscle spasms [Unknown]
  - Postoperative wound infection [Unknown]
  - Hallucination [Unknown]
  - Memory impairment [Unknown]
  - Male sterilisation [Recovered/Resolved]
  - Epididymitis [Recovered/Resolved]

NARRATIVE: CASE EVENT DATE: 201911
